FAERS Safety Report 15419665 (Version 1)
Quarter: 2018Q3

REPORT INFORMATION
  Report Type: Report from Study
  Country: US (occurrence: US)
  Receive Date: 20180924
  Receipt Date: 20180924
  Transmission Date: 20181010
  Serious: Yes (Hospitalization, Disabling, Other)
  Sender: FDA-Public Use
  Company Number: US-SA-2018SA240027

PATIENT
  Age: 58 Year
  Sex: Female

DRUGS (1)
  1. INSULIN GLULISINE [Suspect]
     Active Substance: INSULIN GLULISINE
     Indication: TYPE 2 DIABETES MELLITUS
     Dosage: 26 IU, TID
     Route: 058

REACTIONS (2)
  - Sepsis [Recovered/Resolved]
  - Osteomyelitis [Recovered/Resolved]
